FAERS Safety Report 4368935-6 (Version None)
Quarter: 2004Q2

REPORT INFORMATION
  Report Type: 
  Country: None (occurrence: None)
  Receive Date: 20040525
  Receipt Date: 20040512
  Transmission Date: 20050107
  Serious: Yes (Hospitalization)
  Sender: FDA-Public Use
  Company Number: 001-0981-998387

PATIENT
  Age: 69 Year
  Sex: Female
  Weight: 55.2 kg

DRUGS (7)
  1. ATORVASTATIN (ATORVASTATIN) [Suspect]
     Indication: CORONARY ARTERY DISEASE
     Dosage: SEE IMAGE
     Route: 048
     Dates: start: 19990820, end: 19991019
  2. ATORVASTATIN (ATORVASTATIN) [Suspect]
     Indication: CORONARY ARTERY DISEASE
     Dosage: SEE IMAGE
     Route: 048
     Dates: start: 19991020
  3. TOCOPHEROL CONCENTRATE CAP [Concomitant]
  4. MULTIVITAMINS (ASCORBIC ACID, ERGOCALCIFEROL FOLIC ACID, NICOTINAMIDE, [Concomitant]
  5. B-KOMPLEX ^LECIVA^ (CALCIUM PANTOTHENATE,NICOTINAMIDE, PYRIDOXINE HYDR [Concomitant]
  6. ACETYLSALICYLIC ACID SRT [Concomitant]
  7. PHENOLPHTHALEIN (PHENOLPHTHALEIN) [Concomitant]

REACTIONS (4)
  - BACK PAIN [None]
  - CHOLECYSTITIS [None]
  - CHOLELITHIASIS [None]
  - FLANK PAIN [None]
